FAERS Safety Report 5662591-2 (Version None)
Quarter: 2008Q1

REPORT INFORMATION
  Report Type: 
  Country: None (occurrence: None)
  Receive Date: 20080219
  Receipt Date: 20070822
  Transmission Date: 20080703
  Serious: Yes (Other)
  Sender: FDA-Public Use
  Company Number: 2007070206

PATIENT
  Age: 65 Year
  Sex: Female

DRUGS (1)
  1. FRAGMIN [Suspect]
     Indication: PROPHYLAXIS
     Dates: start: 20070301, end: 20070301

REACTIONS (1)
  - DEEP VEIN THROMBOSIS [None]
